FAERS Safety Report 25503003 (Version 1)
Quarter: 2025Q3

REPORT INFORMATION
  Report Type: Spontaneous
  Country: CN (occurrence: CN)
  Receive Date: 20250702
  Receipt Date: 20250702
  Transmission Date: 20251021
  Serious: Yes (Other)
  Sender: SANDOZ
  Company Number: CN-002147023-NVSC2025CN103742

PATIENT
  Age: 79 Year
  Sex: Male

DRUGS (1)
  1. BRINZOLAMIDE [Suspect]
     Active Substance: BRINZOLAMIDE
     Indication: Glaucoma
     Route: 047
     Dates: start: 20250528, end: 20250619

REACTIONS (2)
  - Renal failure [Unknown]
  - Dizziness [Unknown]

NARRATIVE: CASE EVENT DATE: 20250619
